FAERS Safety Report 4783839-2 (Version None)
Quarter: 2005Q3

REPORT INFORMATION
  Report Type: 
  Country: None (occurrence: None)
  Receive Date: 20050928
  Receipt Date: 20050120
  Transmission Date: 20060218
  Serious: Yes (Life-Threatening, Hospitalization)
  Sender: FDA-Public Use
  Company Number: 2005FL-00320

PATIENT
  Age: 53 Year
  Sex: Male

DRUGS (2)
  1. IBUPROFEN [Suspect]
     Indication: BACK PAIN
     Dosage: 200 MG 2 TABS TDS; ORAL
     Route: 048
  2. ZOPLICLONE [Concomitant]
     Indication: INSOMNIA
     Dosage: 7.5 MGG
     Route: 048
     Dates: start: 20040615, end: 20040629

REACTIONS (2)
  - DUODENAL ULCER HAEMORRHAGE [None]
  - HAEMOGLOBIN DECREASED [None]
